FAERS Safety Report 6207128-4 (Version None)
Quarter: 2009Q2

REPORT INFORMATION
  Report Type: 
  Country: None (occurrence: None)
  Receive Date: 20090528
  Receipt Date: 20081224
  Transmission Date: 20091009
  Serious: Yes (Other)
  Sender: FDA-Public Use
  Company Number: JP-PFIZER INC-2008160285

PATIENT
  Sex: Male

DRUGS (1)
  1. SOLU-MEDROL [Suspect]
     Dosage: 1 G, 1X/DAY
     Route: 041

REACTIONS (2)
  - ABDOMINAL PAIN UPPER [None]
  - URINARY RETENTION [None]
